FAERS Safety Report 24302067 (Version 3)
Quarter: 2024Q4

REPORT INFORMATION
  Report Type: Report from Study
  Country: US (occurrence: US)
  Receive Date: 20240910
  Receipt Date: 20241119
  Transmission Date: 20250114
  Serious: Yes (Hospitalization, Other)
  Sender: NOVARTIS
  Company Number: US-002147023-NVSC2024US069224

PATIENT
  Age: 53 Year
  Sex: Female
  Weight: 77.11 kg

DRUGS (26)
  1. COSENTYX [Suspect]
     Active Substance: SECUKINUMAB
     Indication: Hidradenitis
     Dosage: 300 MG, QMO
     Route: 058
     Dates: start: 20240119
  2. COSENTYX [Suspect]
     Active Substance: SECUKINUMAB
     Dosage: 300 MG, QMO
     Route: 058
     Dates: start: 20240129
  3. COSENTYX [Suspect]
     Active Substance: SECUKINUMAB
     Dosage: UNK, Q2W
     Route: 058
     Dates: start: 20240123, end: 20240626
  4. COSENTYX [Suspect]
     Active Substance: SECUKINUMAB
     Dosage: 300 MG, Q2W
     Route: 062
     Dates: start: 20240703, end: 20240818
  5. ALPRAZOLAM [Concomitant]
     Active Substance: ALPRAZOLAM
     Indication: Anxiety
     Dosage: 1 DOSAGE FORM, QHS (1MG)
     Route: 048
  6. BUSPIRONE [Concomitant]
     Active Substance: BUSPIRONE HYDROCHLORIDE
     Indication: Anxiety
     Dosage: 1 DOSAGE FORM, BID (10MG)
     Route: 048
  7. ESTRADIOL [Concomitant]
     Active Substance: ESTRADIOL
     Indication: Product used for unknown indication
     Dosage: 0.075 MG/24 HOURS TWICE WEEKLY TRANADERMAL FILM, EXTENDED RELEASE 1 PATCH(ES), Q7DAY
     Route: 062
  8. ESTRADIOL [Concomitant]
     Active Substance: ESTRADIOL
     Dosage: 0.1 MG/G VAGINAL CREAM 1 GM, VAG, AS DIRECTED
     Route: 067
  9. ESTRADIOL [Concomitant]
     Active Substance: ESTRADIOL
     Dosage: 0.075 MG/24 HOURS TWICE WEEKLY TRANSDERMAL FILMS EXTENDED RELEASE)1 PATCH(ES) TRANSDERMAL 2 TIMES A
     Route: 062
  10. FERROUS SULFATE [Concomitant]
     Active Substance: FERROUS SULFATE
     Indication: Product used for unknown indication
     Dosage: 1 DOSAGE FORM, BID (324 MG (65 MG ELEMENTAL IRON) ORAL DELAYED RELEASE TABLET 324 MG)
     Route: 048
  11. FLAGYL [Concomitant]
     Active Substance: METRONIDAZOLE\METRONIDAZOLE HYDROCHLORIDE
     Indication: Product used for unknown indication
     Dosage: 1 DOSAGE FORM, BID (500 MG ORAL TABLET) 500 MG ORAL TABLET
     Route: 048
  12. LEVAQUIN [Concomitant]
     Active Substance: LEVOFLOXACIN
     Indication: Product used for unknown indication
     Dosage: 1 DOSAGE FORM, Q24H (750 MG ORAL TABLET) FOR 10 DAY(S)
     Route: 048
  13. MESALAMINE [Concomitant]
     Active Substance: MESALAMINE
     Indication: Product used for unknown indication
     Dosage: 2 DOSAGE FORM, QHS (1000 MG RECTAL SUPPOSITORY)
     Route: 054
  14. METFORMIN [Concomitant]
     Active Substance: METFORMIN HYDROCHLORIDE
     Indication: Hidradenitis
     Dosage: 1 DOSAGE FORM, BID (500 MG TABLET
     Route: 048
  15. NORETHINDRONE [Concomitant]
     Active Substance: NORETHINDRONE
     Indication: Product used for unknown indication
     Dosage: 1 DOSAGE FORM, QD (5 MG)
     Route: 048
  16. OMEPRAZOLE [Concomitant]
     Active Substance: OMEPRAZOLE
     Indication: Product used for unknown indication
     Dosage: 1 DOSAGE FORM, OTHER (40 MG ORAL DELAYED RELEASE CAPSULE
     Route: 048
  17. SPIRONOLACTONE [Concomitant]
     Active Substance: SPIRONOLACTONE
     Indication: Hypertension
     Dosage: 1 DOSAGE FORM, QD (50 MG TABLET)
     Route: 048
  18. SPIRONOLACTONE [Concomitant]
     Active Substance: SPIRONOLACTONE
     Dosage: 100 MG, QD
     Route: 048
  19. VILAZODONE [Concomitant]
     Active Substance: VILAZODONE
     Indication: Anxiety
     Dosage: 1 DOSAGE FORM, OTHER (40 MG TABLET QAM)
     Route: 048
  20. ZOFRAN [Concomitant]
     Active Substance: ONDANSETRON HYDROCHLORIDE
     Indication: Product used for unknown indication
     Dosage: 4 MG, IV PUSH
     Route: 041
  21. IOPAMIDOL [Concomitant]
     Active Substance: IOPAMIDOL
     Indication: Product used for unknown indication
     Dosage: 95 ML
     Route: 041
  22. ACETAMINOPHEN [Concomitant]
     Active Substance: ACETAMINOPHEN
     Indication: Product used for unknown indication
     Dosage: 650 MG, Q6H, PRN
     Route: 048
  23. CIPRO [Concomitant]
     Active Substance: CIPROFLOXACIN HYDROCHLORIDE
     Indication: Product used for unknown indication
     Dosage: 400 MG, PIGGYBACK Q12H
     Route: 041
  24. FERROUS SULFATE [Concomitant]
     Active Substance: FERROUS SULFATE
     Indication: Product used for unknown indication
     Dosage: 325 MG, BID
     Route: 048
  25. PANTOPRAZOLE [Concomitant]
     Active Substance: PANTOPRAZOLE
     Indication: Product used for unknown indication
     Dosage: 40 MG, QD
     Route: 048
  26. TORADOL [Concomitant]
     Active Substance: KETOROLAC TROMETHAMINE
     Indication: Product used for unknown indication
     Dosage: 15 MG, Q6H, PRN
     Route: 041

REACTIONS (17)
  - Constipation [Recovered/Resolved]
  - Colitis [Recovered/Resolved]
  - Haematochezia [Unknown]
  - Diarrhoea haemorrhagic [Unknown]
  - Mucous stools [Unknown]
  - Defaecation urgency [Unknown]
  - Chills [Unknown]
  - Abdominal pain lower [Unknown]
  - Diverticulitis [Unknown]
  - Condition aggravated [Unknown]
  - Hidradenitis [Unknown]
  - Lymphadenopathy [Unknown]
  - Adverse drug reaction [Unknown]
  - Neutrophil count increased [Unknown]
  - Blood urea nitrogen/creatinine ratio increased [Unknown]
  - Blood glucose increased [Unknown]
  - Lymphocyte count decreased [Unknown]

NARRATIVE: CASE EVENT DATE: 20240327
